FAERS Safety Report 11225272 (Version 2)
Quarter: 2020Q1

REPORT INFORMATION
  Report Type: Spontaneous
  Country: US (occurrence: US)
  Receive Date: 20150629
  Receipt Date: 20200114
  Transmission Date: 20200409
  Serious: Yes (Other)
  Sender: FDA-Public Use
  Company Number: US-PFIZER INC-2015211963

PATIENT
  Age: 59 Year
  Sex: Female

DRUGS (1)
  1. LYRICA [Suspect]
     Active Substance: PREGABALIN
     Dosage: 600 MG, DAILY (TAKE IT 2 (300MG) A.M.,6-8 HOURS LATER WITH ANOTHER 150MG, THEN 150 MG AT BED TIME)
     Route: 048

REACTIONS (2)
  - Intentional product misuse [Unknown]
  - Gait inability [Unknown]
